FAERS Safety Report 7956890-9 (Version None)
Quarter: 2011Q4

REPORT INFORMATION
  Report Type: 
  Country: None (occurrence: None)
  Receive Date: 20111205
  Receipt Date: 20111128
  Transmission Date: 20120403
  Serious: Yes (Hospitalization)
  Sender: FDA-Public Use
  Company Number: GB-B.I. PHARMACEUTICALS,INC./RIDGEFIELD-2011-UK-00955UK

PATIENT
  Age: 74 Year
  Sex: Female
  Weight: 92.4 kg

DRUGS (7)
  1. PRADAXA [Suspect]
     Indication: TRANSIENT ISCHAEMIC ATTACK
     Dosage: 150 MG
     Dates: start: 20110504
  2. CO-AMILOFRUSE [Concomitant]
     Dosage: 2.5/20
     Route: 048
  3. PRADAXA [Suspect]
     Indication: ATRIAL FIBRILLATION
     Dosage: 75 MG
     Route: 048
     Dates: start: 20110427
  4. PRILOSEC [Concomitant]
     Dosage: 20 MG
     Route: 048
  5. WARFARIN SODIUM [Concomitant]
     Route: 048
  6. PHENINDIONE [Concomitant]
     Indication: TRANSIENT ISCHAEMIC ATTACK
  7. ATORVASTATIN [Concomitant]
     Dosage: 10 MG
     Route: 048

REACTIONS (3)
  - DIZZINESS [None]
  - GRAVITATIONAL OEDEMA [None]
  - NIGHTMARE [None]
